FAERS Safety Report 21802770 (Version 1)
Quarter: 2022Q4

REPORT INFORMATION
  Report Type: Spontaneous
  Country: JP (occurrence: JP)
  Receive Date: 20221231
  Receipt Date: 20221231
  Transmission Date: 20230113
  Serious: No
  Sender: FDA-Public Use
  Company Number: JP-ALKEM LABORATORIES LIMITED-JP-ALKEM-2022-11672

PATIENT
  Age: 35 Year
  Sex: Female

DRUGS (2)
  1. SIROLIMUS [Suspect]
     Active Substance: SIROLIMUS
     Indication: Lymphangioma
     Dosage: UNK UNK, QD (ONCE DAY)
     Route: 048
     Dates: start: 201505, end: 201809
  2. SIROLIMUS [Suspect]
     Active Substance: SIROLIMUS
     Dosage: UNK (DOSE WAS ADJUSTED SO THAT THE TROUGH CONCENTRATION REMAINED WITHIN 5-15 NG/ML)
     Route: 065

REACTIONS (1)
  - Stomatitis [Unknown]
